FAERS Safety Report 15776359 (Version 1)
Quarter: 2018Q4

REPORT INFORMATION
  Report Type: Spontaneous
  Country: US (occurrence: US)
  Receive Date: 20181228
  Receipt Date: 20181228
  Transmission Date: 20190205
  Serious: Yes (Other)
  Sender: FDA-Public Use
  Company Number: None

PATIENT
  Age: 42 Year
  Sex: Female
  Weight: 180 kg

DRUGS (1)
  1. OLMESARTAN MEDOXOMIL AMLODIPINE AND HYDROCHLOROTHIAZIDE 40/10/2 5 [Suspect]
     Active Substance: AMLODIPINE BESYLATE\HYDROCHLOROTHIAZIDE\OLMESARTAN MEDOXOMIL
     Dosage: ?          QUANTITY:1 TABLET(S);?
     Route: 048
     Dates: start: 20181218, end: 20181225

REACTIONS (6)
  - Drug ineffective [None]
  - Chest discomfort [None]
  - Product quality issue [None]
  - Palpitations [None]
  - Blood pressure diastolic increased [None]
  - Feeling abnormal [None]

NARRATIVE: CASE EVENT DATE: 20181218
